FAERS Safety Report 18405918 (Version 2)
Quarter: 2020Q4

REPORT INFORMATION
  Report Type: Report from Study
  Country: DE (occurrence: DE)
  Receive Date: 20201020
  Receipt Date: 20201228
  Transmission Date: 20210114
  Serious: Yes (Hospitalization)
  Sender: FDA-Public Use
  Company Number: DE-BAUSCH-BL-2020-029679

PATIENT
  Age: 73 Year
  Sex: Male
  Weight: 85 kg

DRUGS (3)
  1. DARATUMUMAB [Suspect]
     Active Substance: DARATUMUMAB
     Indication: PLASMA CELL MYELOMA
     Dosage: LAST DOSAGE BEFORE EVENT ONSET WAS 1296 MG ON 14/JAN/2020.
     Route: 042
     Dates: start: 20191217
  2. DARATUMUMAB [Suspect]
     Active Substance: DARATUMUMAB
     Dosage: 2ND LINE THERAPY
     Route: 065
     Dates: start: 20200707
  3. DEXAMETHASONE. [Suspect]
     Active Substance: DEXAMETHASONE
     Indication: PLASMA CELL MYELOMA
     Dosage: THE LAST DOSE OF DEXAMETHASONE ON 04/FEB/2020 BEFORE EVENT.
     Route: 065
     Dates: start: 20190122

REACTIONS (2)
  - Nausea [Recovered/Resolved]
  - Weight decreased [Unknown]

NARRATIVE: CASE EVENT DATE: 202002
